FAERS Safety Report 7469740-4 (Version None)
Quarter: 2011Q2

REPORT INFORMATION
  Report Type: 
  Country: None (occurrence: None)
  Receive Date: 20110510
  Receipt Date: 20110509
  Transmission Date: 20111010
  Serious: Yes (Other)
  Sender: FDA-Public Use
  Company Number: US-ABBOTT-11P-163-0723305-00

PATIENT
  Sex: Female
  Weight: 64.468 kg

DRUGS (2)
  1. LEXAPRO [Concomitant]
     Indication: PRODUCT USED FOR UNKNOWN INDICATION
  2. LUPRON DEPOT [Suspect]
     Indication: ARTIFICIAL MENOPAUSE
     Route: 030
     Dates: start: 20100801

REACTIONS (1)
  - BREAST CANCER [None]
